FAERS Safety Report 5840361-X (Version None)
Quarter: 2008Q3

REPORT INFORMATION
  Report Type: 
  Country: None (occurrence: None)
  Receive Date: 20080811
  Receipt Date: 20080804
  Transmission Date: 20090109
  Serious: Yes (Other)
  Sender: FDA-Public Use
  Company Number: US-MERCK-0807USA01204

PATIENT
  Age: 60 Year
  Sex: Female
  Weight: 52 kg

DRUGS (6)
  1. JANUVIA [Suspect]
     Route: 048
     Dates: start: 20080101, end: 20080101
  2. GLYBURIDE [Concomitant]
     Route: 065
  3. METFORMIN [Concomitant]
     Route: 065
  4. GABAPENTIN [Concomitant]
     Route: 065
  5. PLAVIX [Concomitant]
     Route: 065
  6. CRESTOR [Concomitant]
     Route: 065

REACTIONS (1)
  - DRUG ERUPTION [None]
